FAERS Safety Report 4320206-X (Version None)
Quarter: 2004Q1

REPORT INFORMATION
  Report Type: 
  Country: None (occurrence: None)
  Receive Date: 20040317
  Receipt Date: 20040304
  Transmission Date: 20041129
  Serious: Yes (Hospitalization)
  Sender: FDA-Public Use
  Company Number: 2004015759

PATIENT
  Age: 53 Year
  Sex: Male
  Weight: 80 kg

DRUGS (6)
  1. NEURONTIN [Suspect]
     Indication: ARTHRALGIA
     Dosage: 900 MG (TID) ORAL
     Route: 048
     Dates: start: 20031008, end: 20031117
  2. MORPHINE SULFATE [Concomitant]
  3. ACETAMINOPHEN [Concomitant]
  4. CELIPROLOL (CELIPROLOL) [Concomitant]
  5. SPIRONOLACTONE [Concomitant]
  6. CHONDROITIN SULFATE SODIUM (CHONDROITIN SULFATE SODIUM) [Concomitant]

REACTIONS (1)
  - MULTIPLE SCLEROSIS RELAPSE [None]
